FAERS Safety Report 8421794-4 (Version None)
Quarter: 2012Q2

REPORT INFORMATION
  Report Type: 
  Country: None (occurrence: None)
  Receive Date: 20120608
  Receipt Date: 20120530
  Transmission Date: 20120825
  Serious: Yes (Other)
  Sender: FDA-Public Use
  Company Number: US-ALLERGAN-1200851US

PATIENT
  Age: 53 Year
  Sex: Female

DRUGS (3)
  1. BOTOX COSMETIC [Suspect]
     Indication: SKIN WRINKLING
     Dosage: 24 UNITS, UNK
     Dates: start: 20111123, end: 20111123
  2. BOTOX COSMETIC [Suspect]
     Indication: SKIN COSMETIC PROCEDURE
  3. BOTOX COSMETIC [Suspect]
     Dosage: UNK
     Route: 030
     Dates: start: 20110823, end: 20110823

REACTIONS (2)
  - EYELID PTOSIS [None]
  - VISION BLURRED [None]
